FAERS Safety Report 5895706-1 (Version None)
Quarter: 2008Q3

REPORT INFORMATION
  Report Type: 
  Country: None (occurrence: None)
  Receive Date: 20080828
  Receipt Date: 20071211
  Transmission Date: 20090109
  Serious: Yes (Hospitalization)
  Sender: FDA-Public Use
  Company Number: 165526USA

PATIENT
  Sex: Female

DRUGS (3)
  1. LISINOPRIL [Suspect]
     Dosage: 10 MG, (10 MG,1 IN 1 D)
     Dates: start: 20050101, end: 20070101
  2. METFORMIN HCL [Concomitant]
  3. ROSIGLITAZONE MALEATE [Concomitant]

REACTIONS (6)
  - ABDOMINAL DISTENSION [None]
  - HYPOTENSION [None]
  - MALAISE [None]
  - MENSTRUAL DISORDER [None]
  - PAIN IN EXTREMITY [None]
  - WEIGHT INCREASED [None]
